FAERS Safety Report 4447252-X (Version None)
Quarter: 2004Q3

REPORT INFORMATION
  Report Type: 
  Country: None (occurrence: None)
  Receive Date: 20040813
  Receipt Date: 20040713
  Transmission Date: 20050211
  Serious: No
  Sender: FDA-Public Use
  Company Number: S04-USA-04044-01

PATIENT
  Age: 65 Year
  Sex: Female

DRUGS (8)
  1. NAMENDA [Suspect]
     Indication: MEMORY IMPAIRMENT
     Dosage: 15 MG QD PO
     Route: 048
     Dates: start: 20040101, end: 20040101
  2. NAMENDA [Suspect]
     Indication: MEMORY IMPAIRMENT
     Dosage: 10 MG BID PO
     Route: 048
     Dates: start: 20040101
  3. NAMENDA [Suspect]
     Indication: MEMORY IMPAIRMENT
     Dosage: 5 MG QD PO
     Route: 048
     Dates: start: 20040601, end: 20040101
  4. NAMENDA [Suspect]
     Indication: MEMORY IMPAIRMENT
     Dosage: 10 MG QD PO
     Route: 048
     Dates: start: 20040101, end: 20040101
  5. EVISTA [Concomitant]
  6. ZOCOR [Concomitant]
  7. PLAVIX [Concomitant]
  8. PREVACID [Concomitant]

REACTIONS (3)
  - DRY SKIN [None]
  - PRURITUS [None]
  - SKIN INFECTION [None]
